FAERS Safety Report 5753622-X (Version None)
Quarter: 2008Q2

REPORT INFORMATION
  Report Type: 
  Country: None (occurrence: None)
  Receive Date: 20080530
  Receipt Date: 20080520
  Transmission Date: 20081010
  Serious: Yes (Death, Hospitalization)
  Sender: FDA-Public Use
  Company Number: US-JNJFOC-20080104622

PATIENT
  Sex: Female
  Weight: 50.35 kg

DRUGS (24)
  1. REMICADE [Suspect]
  2. REMICADE [Suspect]
  3. REMICADE [Suspect]
  4. REMICADE [Suspect]
  5. REMICADE [Suspect]
  6. REMICADE [Suspect]
  7. REMICADE [Suspect]
  8. REMICADE [Suspect]
  9. REMICADE [Suspect]
  10. REMICADE [Suspect]
  11. REMICADE [Suspect]
  12. REMICADE [Suspect]
  13. REMICADE [Suspect]
  14. REMICADE [Suspect]
  15. REMICADE [Suspect]
  16. REMICADE [Suspect]
  17. REMICADE [Suspect]
  18. REMICADE [Suspect]
  19. REMICADE [Suspect]
  20. REMICADE [Suspect]
     Indication: CROHN'S DISEASE
  21. ANTIDEPRESSANTS [Concomitant]
  22. MERCAPTOPURINE [Concomitant]
     Indication: CROHN'S DISEASE
  23. ACETAMINOPHREN [Concomitant]
     Indication: PREMEDICATION
  24. ANTIHISTAMINES [Concomitant]
     Indication: PREMEDICATION

REACTIONS (1)
  - EMPHYSEMA [None]
